FAERS Safety Report 14395194 (Version 1)
Quarter: 2018Q1

REPORT INFORMATION
  Report Type: Spontaneous
  Country: US (occurrence: US)
  Receive Date: 20180116
  Receipt Date: 20180116
  Transmission Date: 20180509
  Serious: No
  Sender: FDA-Public Use
  Company Number: US-ALLERGAN-1702018US

PATIENT
  Sex: Female

DRUGS (2)
  1. BOTOX [Suspect]
     Active Substance: ONABOTULINUMTOXINA
     Indication: TEMPOROMANDIBULAR JOINT SYNDROME
     Dosage: 40 UNITS, SINGLE
     Route: 030
     Dates: start: 201701, end: 201701
  2. BOTOX [Suspect]
     Active Substance: ONABOTULINUMTOXINA
     Dosage: 20 UNITS, SINGLE
     Route: 030

REACTIONS (7)
  - Facial paresis [Recovering/Resolving]
  - Product use in unapproved indication [Unknown]
  - Nausea [Recovering/Resolving]
  - Drug ineffective [Not Recovered/Not Resolved]
  - Dizziness [Recovering/Resolving]
  - Hot flush [Recovering/Resolving]
  - Neck pain [Recovering/Resolving]
